FAERS Safety Report 23071372 (Version 2)
Quarter: 2023Q4

REPORT INFORMATION
  Report Type: Report from Study
  Country: US (occurrence: US)
  Receive Date: 20231017
  Receipt Date: 20231018
  Transmission Date: 20240109
  Serious: Yes (Hospitalization, Other)
  Sender: FDA-Public Use
  Company Number: US-ABBVIE-5451650

PATIENT
  Sex: Male

DRUGS (2)
  1. HUMIRA [Suspect]
     Active Substance: ADALIMUMAB
     Indication: Rheumatoid arthritis
     Dosage: FORM STRENGTH: 40 MILLIGRAM
     Route: 058
  2. HUMIRA [Suspect]
     Active Substance: ADALIMUMAB
     Route: 058
     Dates: start: 20221024, end: 20231001

REACTIONS (5)
  - Appendicitis perforated [Not Recovered/Not Resolved]
  - Hip arthroplasty [Recovering/Resolving]
  - Cholecystectomy [Recovering/Resolving]
  - Infection [Unknown]
  - Colon injury [Not Recovered/Not Resolved]

NARRATIVE: CASE EVENT DATE: 20230101
